FAERS Safety Report 13548752 (Version 1)
Quarter: 2017Q2

REPORT INFORMATION
  Report Type: Spontaneous
  Country: BR (occurrence: BR)
  Receive Date: 20170516
  Receipt Date: 20170516
  Transmission Date: 20170830
  Serious: Yes (Other)
  Sender: FDA-Public Use
  Company Number: BR-TORRENT-00003981

PATIENT
  Age: 71 Year
  Sex: Female
  Weight: 70 kg

DRUGS (7)
  1. RITALINA [Concomitant]
     Active Substance: METHYLPHENIDATE HYDROCHLORIDE
  2. MACRODANTIN [Concomitant]
     Active Substance: NITROFURANTOIN
  3. ACETYLSALICYLIC ACID [Concomitant]
     Active Substance: ASPIRIN
  4. RIVOTRIL [Concomitant]
     Active Substance: CLONAZEPAM
  5. MIRTAZAPINE. [Suspect]
     Active Substance: MIRTAZAPINE
  6. VENLIFT OD [Suspect]
     Active Substance: VENLAFAXINE HYDROCHLORIDE
  7. LEVOTHYROXINE SODIUM. [Concomitant]
     Active Substance: LEVOTHYROXINE SODIUM

REACTIONS (5)
  - Overdose [Not Recovered/Not Resolved]
  - Thyroid function test abnormal [Recovered/Resolved]
  - Venous occlusion [Unknown]
  - Blood cholesterol abnormal [Recovered/Resolved]
  - Drug ineffective [Recovered/Resolved]

NARRATIVE: CASE EVENT DATE: 2014
